FAERS Safety Report 21984502 (Version 2)
Quarter: 2023Q1

REPORT INFORMATION
  Report Type: Spontaneous
  Country: US (occurrence: US)
  Receive Date: 20230213
  Receipt Date: 20230321
  Transmission Date: 20230418
  Serious: No
  Sender: FDA-Public Use
  Company Number: US-VIIV HEALTHCARE LIMITED-US2023AMR017380

PATIENT
  Age: 54 Year
  Sex: Female

DRUGS (26)
  1. RILPIVIRINE [Suspect]
     Active Substance: RILPIVIRINE
     Indication: HIV infection
     Dosage: UNK 600MG/900MG IM EVERY MONTH X2, THEN EVERY 2 MONTHS THEREAFTER
     Route: 030
     Dates: start: 20220729
  2. RILPIVIRINE [Suspect]
     Active Substance: RILPIVIRINE
     Indication: Acquired immunodeficiency syndrome
     Route: 065
  3. RILPIVIRINE [Suspect]
     Active Substance: RILPIVIRINE
     Dosage: UNK UNK, Z 600MG/900MG IM EVERY MONTH X2, THEN EVERY 2 MONTHS THEREAFTER
     Route: 030
     Dates: start: 20220829
  4. RILPIVIRINE [Suspect]
     Active Substance: RILPIVIRINE
     Route: 065
  5. RILPIVIRINE [Suspect]
     Active Substance: RILPIVIRINE
     Dosage: UNK, Z 600MG/900MG IM EVERY MONTH X2, THEN EVERY 2 MONTHS THEREAFTER
     Route: 030
     Dates: start: 20221029
  6. RILPIVIRINE [Suspect]
     Active Substance: RILPIVIRINE
     Route: 065
  7. RILPIVIRINE [Suspect]
     Active Substance: RILPIVIRINE
     Dosage: UNK, Z 600MG/900MG IM EVERY MONTH X2, THEN EVERY 2 MONTHS THEREAFTER
     Route: 030
     Dates: start: 20221229, end: 20230201
  8. RILPIVIRINE [Suspect]
     Active Substance: RILPIVIRINE
     Route: 065
  9. CABOTEGRAVIR [Suspect]
     Active Substance: CABOTEGRAVIR
     Indication: HIV infection
     Dosage: UNK 600MG/900MG IM EVERY MONTH X2, THEN EVERY 2 MONTHS THEREAFTER
     Route: 030
     Dates: start: 20220729
  10. CABOTEGRAVIR [Suspect]
     Active Substance: CABOTEGRAVIR
     Indication: Acquired immunodeficiency syndrome
     Route: 065
  11. CABOTEGRAVIR [Suspect]
     Active Substance: CABOTEGRAVIR
     Dosage: UNK UNK, Z 600MG/900MG IM EVERY MONTH X2, THEN EVERY 2 MONTHS THEREAFTER
     Route: 030
     Dates: start: 20220829
  12. CABOTEGRAVIR [Suspect]
     Active Substance: CABOTEGRAVIR
     Route: 065
  13. CABOTEGRAVIR [Suspect]
     Active Substance: CABOTEGRAVIR
     Dosage: UNK, Z 600MG/900MG IM EVERY MONTH X2, THEN EVERY 2 MONTHS THEREAFTER
     Route: 030
     Dates: start: 20221029
  14. CABOTEGRAVIR [Suspect]
     Active Substance: CABOTEGRAVIR
     Route: 065
  15. CABOTEGRAVIR [Suspect]
     Active Substance: CABOTEGRAVIR
     Dosage: UNK, Z 600MG/900MG IM EVERY MONTH X2, THEN EVERY 2 MONTHS THEREAFTER
     Route: 030
     Dates: start: 20221229, end: 20230201
  16. CABOTEGRAVIR [Suspect]
     Active Substance: CABOTEGRAVIR
     Route: 065
  17. SUMATRIPTAN [Concomitant]
     Active Substance: SUMATRIPTAN
     Indication: Product used for unknown indication
     Dosage: 100 MG
  18. VITAMIN D2 [Concomitant]
     Active Substance: ERGOCALCIFEROL
     Indication: Product used for unknown indication
     Dosage: UNK 50,000 UN
  19. ATENOLOL [Concomitant]
     Active Substance: ATENOLOL
     Indication: Product used for unknown indication
     Dosage: 100 MG
  20. ATORVASTATIN [Concomitant]
     Active Substance: ATORVASTATIN
     Indication: Product used for unknown indication
     Dosage: 10 MG
  21. LYRICA [Concomitant]
     Active Substance: PREGABALIN
     Indication: Product used for unknown indication
     Dosage: 100 MG
  22. MONTELUKAST [Concomitant]
     Active Substance: MONTELUKAST SODIUM
     Indication: Product used for unknown indication
     Dosage: 10 MG
  23. NUCYNTA ER [Concomitant]
     Active Substance: TAPENTADOL HYDROCHLORIDE
     Indication: Product used for unknown indication
     Dosage: 100 MG
  24. PANTOPRAZOLE [Concomitant]
     Active Substance: PANTOPRAZOLE
     Indication: Product used for unknown indication
     Dosage: 20 MG
  25. TIZANIDINE [Concomitant]
     Active Substance: TIZANIDINE
     Indication: Product used for unknown indication
     Dosage: 4 MG
  26. VERAPAMIL HYDROCHLORIDE [Concomitant]
     Active Substance: VERAPAMIL HYDROCHLORIDE
     Indication: Product used for unknown indication
     Dosage: 180 MG

REACTIONS (2)
  - Viral load increased [Unknown]
  - Treatment failure [Unknown]

NARRATIVE: CASE EVENT DATE: 20230201
